FAERS Safety Report 6543752-7 (Version None)
Quarter: 2010Q1

REPORT INFORMATION
  Report Type: 
  Country: None (occurrence: None)
  Receive Date: 20100119
  Receipt Date: 20100119
  Transmission Date: 20100710
  Serious: Yes (Hospitalization)
  Sender: FDA-Public Use
  Company Number: None

PATIENT
  Age: 44 Year
  Sex: Female
  Weight: 108.8633 kg

DRUGS (2)
  1. MOTRIN [Suspect]
     Indication: MIGRAINE
     Dosage: 200 MG 2 TABS 2-4 X PER DAY PO
     Route: 048
     Dates: start: 20091228, end: 20100115
  2. MOTRIN [Suspect]
     Indication: NAUSEA
     Dosage: 200 MG 2 TABS 2-4 X PER DAY PO
     Route: 048
     Dates: start: 20091228, end: 20100115

REACTIONS (5)
  - MALAISE [None]
  - MIGRAINE [None]
  - NAUSEA [None]
  - PRODUCT QUALITY ISSUE [None]
  - VISION BLURRED [None]
